FAERS Safety Report 22793072 (Version 3)
Quarter: 2024Q4

REPORT INFORMATION
  Report Type: Report from Study
  Country: FR (occurrence: FR)
  Receive Date: 20230807
  Receipt Date: 20241105
  Transmission Date: 20250115
  Serious: Yes (Death)
  Sender: ALEXION PHARMACEUTICALS
  Company Number: 2023A178913

PATIENT
  Age: 78 Year
  Weight: 77 kg

DRUGS (2)
  1. IMFINZI [Suspect]
     Active Substance: DURVALUMAB
     Indication: Hepatocellular carcinoma
     Dosage: 1500 MILLIGRAM, UNK
  2. IMJUDO [Suspect]
     Active Substance: TREMELIMUMAB\TREMELIMUMAB-ACTL
     Indication: Hepatocellular carcinoma
     Dosage: 300 MILLIGRAM, UNK

REACTIONS (1)
  - Cardiac disorder [Fatal]
